FAERS Safety Report 11035785 (Version 2)
Quarter: 2015Q2

REPORT INFORMATION
  Report Type: Spontaneous
  Country: US (occurrence: US)
  Receive Date: 20150415
  Receipt Date: 20150525
  Transmission Date: 20150821
  Serious: No
  Sender: FDA-Public Use
  Company Number: US-JNJFOC-20121112791

PATIENT
  Age: 100 Year
  Sex: Male
  Weight: 79.83 kg

DRUGS (3)
  1. GABATIN [Concomitant]
     Indication: ARTHRITIS
  2. XARELTO [Suspect]
     Active Substance: RIVAROXABAN
     Indication: MYOCARDIAL INFARCTION
     Route: 048
     Dates: start: 201211
  3. UNKNOWN MEDICATION [Concomitant]
     Active Substance: UNSPECIFIED INGREDIENT
     Indication: PROSTATIC DISORDER

REACTIONS (6)
  - Gastrointestinal pain [Recovered/Resolved]
  - Nasopharyngitis [Recovering/Resolving]
  - Swelling [Not Recovered/Not Resolved]
  - Dyspepsia [Not Recovered/Not Resolved]
  - Cough [Recovering/Resolving]
  - Functional gastrointestinal disorder [Recovered/Resolved]

NARRATIVE: CASE EVENT DATE: 201211
